FAERS Safety Report 22381826 (Version 1)
Quarter: 2023Q2

REPORT INFORMATION
  Report Type: Report from Study
  Country: IT (occurrence: IT)
  Receive Date: 20230530
  Receipt Date: 20230530
  Transmission Date: 20230722
  Serious: Yes (Other)
  Sender: FDA-Public Use
  Company Number: IT-CELLTRION INC.-2023IT010856

PATIENT

DRUGS (3)
  1. BEVACIZUMAB [Suspect]
     Active Substance: BEVACIZUMAB
     Indication: Adenocarcinoma of colon
     Dosage: 390 MG, EVERY 14 DAYS
     Route: 042
     Dates: start: 20221114
  2. IRINOTECAN [Suspect]
     Active Substance: IRINOTECAN
     Indication: Adenocarcinoma of colon
     Dosage: 300 MG, EVERY 14 DAYS
     Route: 042
     Dates: start: 20221114
  3. FLUOROURACIL [Suspect]
     Active Substance: FLUOROURACIL
     Indication: Adenocarcinoma of colon
     Dosage: 4650 MG, EVERY 14 DAYS
     Route: 042
     Dates: start: 20221114

REACTIONS (4)
  - Neutropenia [Recovered/Resolved]
  - Nail disorder [Unknown]
  - Diarrhoea [Not Recovered/Not Resolved]
  - Underdose [Unknown]

NARRATIVE: CASE EVENT DATE: 20230401
